FAERS Safety Report 15170739 (Version 2)
Quarter: 2018Q4

REPORT INFORMATION
  Report Type: Spontaneous
  Country: GB (occurrence: GB)
  Receive Date: 20180720
  Receipt Date: 20181130
  Transmission Date: 20190204
  Serious: No
  Sender: FDA-Public Use
  Company Number: GB-OTSUKA-2018_024972

PATIENT
  Age: 25 Year
  Sex: Female

DRUGS (1)
  1. ABILIFY MAINTENA [Suspect]
     Active Substance: ARIPIPRAZOLE
     Indication: PRODUCT USED FOR UNKNOWN INDICATION
     Dosage: 400 MG, UNK
     Route: 030
     Dates: start: 20180515

REACTIONS (3)
  - Eye movement disorder [Unknown]
  - Tremor [Unknown]
  - Consciousness fluctuating [Unknown]

NARRATIVE: CASE EVENT DATE: 20180515
